FAERS Safety Report 23577236 (Version 4)
Quarter: 2024Q2

REPORT INFORMATION
  Report Type: Spontaneous
  Country: FR (occurrence: FR)
  Receive Date: 20240228
  Receipt Date: 20240425
  Transmission Date: 20240716
  Serious: Yes (Death, Other)
  Sender: FDA-Public Use
  Company Number: FR-BAYER-2024A028101

PATIENT
  Age: 71 Year
  Sex: Male
  Weight: 133 kg

DRUGS (4)
  1. NUBEQA [Suspect]
     Active Substance: DAROLUTAMIDE
     Indication: Prostate cancer
     Dosage: 300 MG, BID
     Dates: start: 20221028, end: 20231102
  2. NUBEQA [Suspect]
     Active Substance: DAROLUTAMIDE
     Indication: Prostate cancer
     Dosage: 600 MG, BID DURING MEALS (300 MG,1 IN 6 HR)
     Dates: end: 202311
  3. TRIPTORELIN [Concomitant]
     Active Substance: TRIPTORELIN
     Indication: Prostate cancer
     Dosage: UNK
     Route: 058
     Dates: start: 20201026
  4. TRIPTORELIN [Concomitant]
     Active Substance: TRIPTORELIN
     Indication: Prostate cancer
     Dosage: UNK
     Dates: start: 20201026

REACTIONS (2)
  - Myelodysplastic syndrome with multilineage dysplasia [Fatal]
  - Off label use [None]

NARRATIVE: CASE EVENT DATE: 20221028
